FAERS Safety Report 10384471 (Version 1)
Quarter: 2014Q3

REPORT INFORMATION
  Report Type: Spontaneous
  Country: IT (occurrence: None)
  Receive Date: 20140812
  Receipt Date: 20140812
  Transmission Date: 20150326
  Serious: Yes (Death, Hospitalization)
  Sender: FDA-Public Use
  Company Number: 153461

PATIENT
  Age: 56 Year
  Sex: Male

DRUGS (1)
  1. CISPLATIN INJ 50MG/50ML BEDFORD LABS INC [Suspect]
     Active Substance: CISPLATIN
     Indication: LUNG ADENOCARCINOMA
     Dosage: UNK

REACTIONS (6)
  - Posterior reversible encephalopathy syndrome [None]
  - Pain in extremity [None]
  - Cerebral ischaemia [None]
  - Somnolence [None]
  - Headache [None]
  - Blindness [None]
